FAERS Safety Report 4529933-2 (Version None)
Quarter: 2004Q4

REPORT INFORMATION
  Report Type: 
  Country: None (occurrence: None)
  Receive Date: 20041214
  Receipt Date: 20041201
  Transmission Date: 20050328
  Serious: Yes (Hospitalization, Other)
  Sender: FDA-Public Use
  Company Number: 2004101615

PATIENT
  Age: 84 Year
  Sex: Male

DRUGS (3)
  1. TIKOSYN [Suspect]
     Indication: ATRIAL FIBRILLATION
     Dosage: 2 OR 3 YEARS AGO
  2. HYDROCHLOROTHIAZIDE [Suspect]
     Indication: JOINT SWELLING
  3. OXYGEN (OXYGEN) [Concomitant]

REACTIONS (9)
  - ANAEMIA [None]
  - ASTHENIA [None]
  - CONTRAINDICATION TO MEDICAL TREATMENT [None]
  - DRUG INTERACTION [None]
  - EMOTIONAL DISTRESS [None]
  - FALL [None]
  - GAIT DISTURBANCE [None]
  - JOINT SWELLING [None]
  - RESPIRATORY DISORDER [None]
